FAERS Safety Report 19155246 (Version 1)
Quarter: 2021Q2

REPORT INFORMATION
  Report Type: Spontaneous
  Country: US (occurrence: US)
  Receive Date: 20210419
  Receipt Date: 20210419
  Transmission Date: 20210717
  Serious: Yes (Life-Threatening, Other)
  Sender: FDA-Public Use
  Company Number: NVSC2021US084146

PATIENT
  Sex: Female

DRUGS (4)
  1. XIIDRA [Suspect]
     Active Substance: LIFITEGRAST
     Indication: DRY EYE
  2. VALSARTAN. [Concomitant]
     Active Substance: VALSARTAN
     Indication: PRODUCT USED FOR UNKNOWN INDICATION
     Dosage: UNK
     Route: 065
  3. XIIDRA [Suspect]
     Active Substance: LIFITEGRAST
     Indication: CATARACT
     Dosage: UNK
     Route: 065
  4. HYDROCHLOROTHIAZIDE. [Concomitant]
     Active Substance: HYDROCHLOROTHIAZIDE
     Indication: PRODUCT USED FOR UNKNOWN INDICATION
     Dosage: UNK
     Route: 065

REACTIONS (8)
  - Hypersensitivity [Unknown]
  - Fear of death [Unknown]
  - Nephropathy [Unknown]
  - Nausea [Unknown]
  - Abdominal pain upper [Unknown]
  - Eye irritation [Unknown]
  - Diarrhoea [Unknown]
  - Product taste abnormal [Unknown]
